FAERS Safety Report 13006628 (Version 1)
Quarter: 2016Q4

REPORT INFORMATION
  Report Type: Spontaneous
  Country: US (occurrence: US)
  Receive Date: 20161207
  Receipt Date: 20161207
  Transmission Date: 20170207
  Serious: Yes (Disabling)
  Sender: FDA-Public Use
  Company Number: None

PATIENT
  Age: 75 Year
  Sex: Male
  Weight: 94.5 kg

DRUGS (10)
  1. CENTRUM SILVER [Concomitant]
     Active Substance: MINERALS\VITAMINS
  2. ADVIL [Concomitant]
     Active Substance: IBUPROFEN
  3. MONTELUKAST SODIUM. [Concomitant]
     Active Substance: MONTELUKAST SODIUM
  4. CLINDAMYCIN. [Suspect]
     Active Substance: CLINDAMYCIN
     Indication: SKIN INFECTION
     Dosage: ?          QUANTITY:1 CAPSULE(S);?
     Route: 048
     Dates: start: 20161117, end: 20161125
  5. ALBUTEROL INHALER [Concomitant]
     Active Substance: ALBUTEROL
  6. SEVERENT DISCUS INHALER [Concomitant]
  7. PULMICORT TURBUHALER [Concomitant]
     Active Substance: BUDESONIDE
  8. VITAMIN D3 [Concomitant]
     Active Substance: CHOLECALCIFEROL
  9. TYLENOL [Concomitant]
     Active Substance: ACETAMINOPHEN
  10. CURAMED (CURCUMIN) [Concomitant]

REACTIONS (3)
  - Rash [None]
  - Pain [None]
  - Contraindication to medical treatment [None]

NARRATIVE: CASE EVENT DATE: 20161124
